FAERS Safety Report 12182657 (Version 1)
Quarter: 2016Q1

REPORT INFORMATION
  Report Type: Spontaneous
  Country: US (occurrence: None)
  Receive Date: 20160315
  Receipt Date: 20160315
  Transmission Date: 20160526
  Serious: Yes (Other)
  Sender: FDA-Public Use
  Company Number: None

PATIENT
  Age: 52 Year
  Sex: Female
  Weight: 56.7 kg

DRUGS (2)
  1. RESTASIS [Concomitant]
     Active Substance: CYCLOSPORINE
  2. WALGREENS TOOTH WHITENER GENTLE PEROXIDE FREE TOOTH WHITE WALGREENS [Suspect]
     Active Substance: SODIUM CHLORIDE
     Indication: TOOTH DISCOLOURATION
     Dates: start: 20160310, end: 20160310

REACTIONS (4)
  - Laceration [None]
  - Lip pain [None]
  - Lip haemorrhage [None]
  - Injury associated with device [None]

NARRATIVE: CASE EVENT DATE: 20160310
